FAERS Safety Report 24726193 (Version 1)
Quarter: 2024Q4

REPORT INFORMATION
  Report Type: Spontaneous
  Country: US (occurrence: None)
  Receive Date: 20241211
  Receipt Date: 20241211
  Transmission Date: 20250115
  Serious: Yes (Hospitalization)
  Sender: Public
  Company Number: None

PATIENT
  Age: 78 Year
  Sex: Male

DRUGS (1)
  1. BREXPIPRAZOLE [Suspect]
     Active Substance: BREXPIPRAZOLE
     Indication: Dementia Alzheimer^s type
     Dosage: FREQUENCY : DAILY;?
     Route: 048

REACTIONS (4)
  - Coordination abnormal [None]
  - Disorientation [None]
  - Cognitive disorder [None]
  - Fall [None]

NARRATIVE: CASE EVENT DATE: 20241014
